FAERS Safety Report 6711071-1 (Version None)
Quarter: 2010Q2

REPORT INFORMATION
  Report Type: 
  Country: None (occurrence: None)
  Receive Date: 20100505
  Receipt Date: 20090602
  Transmission Date: 20101027
  Serious: No
  Sender: FDA-Public Use
  Company Number: US-KINGPHARMUSA00001-K200900671

PATIENT
  Sex: Female
  Weight: 68.027 kg

DRUGS (1)
  1. AVINZA [Suspect]
     Dosage: 60 MG, SINGLE
     Route: 048
     Dates: start: 20090602

REACTIONS (1)
  - ABDOMINAL DISCOMFORT [None]
